FAERS Safety Report 17032526 (Version 1)
Quarter: 2019Q4

REPORT INFORMATION
  Report Type: Report from Study
  Country: GB (occurrence: GB)
  Receive Date: 20191114
  Receipt Date: 20191114
  Transmission Date: 20200122
  Serious: Yes (Hospitalization)
  Sender: FDA-Public Use
  Company Number: GB-JNJFOC-20191104815

PATIENT
  Sex: Female
  Weight: 99 kg

DRUGS (10)
  1. STELARA [Suspect]
     Active Substance: USTEKINUMAB
     Indication: PSORIASIS
     Route: 058
     Dates: start: 20151201, end: 20190515
  2. LEVETIRACETAM. [Concomitant]
     Active Substance: LEVETIRACETAM
     Dates: start: 20170724
  3. SIMVASTATIN. [Concomitant]
     Active Substance: SIMVASTATIN
     Dates: start: 20141216
  4. DIGOXIN. [Concomitant]
     Active Substance: DIGOXIN
     Dates: start: 20150918
  5. PARACETAMOL [Concomitant]
     Active Substance: ACETAMINOPHEN
     Dates: start: 20170919
  6. LOSARTAN. [Concomitant]
     Active Substance: LOSARTAN
     Dates: start: 20180711, end: 20181005
  7. BISOPROLOL [Concomitant]
     Active Substance: BISOPROLOL
     Dates: start: 20150811
  8. FURSEMIDE [Concomitant]
     Active Substance: FUROSEMIDE
     Dates: start: 20150918
  9. DOVOBET [Concomitant]
     Active Substance: BETAMETHASONE\CALCIPOTRIENE
     Dates: start: 20150203
  10. APIXABAN [Concomitant]
     Active Substance: APIXABAN
     Dates: start: 20170209

REACTIONS (1)
  - Seizure [Recovered/Resolved]

NARRATIVE: CASE EVENT DATE: 20181003
